FAERS Safety Report 5910525-5 (Version None)
Quarter: 2008Q4

REPORT INFORMATION
  Report Type: 
  Country: None (occurrence: None)
  Receive Date: 20081007
  Receipt Date: 20080222
  Transmission Date: 20090506
  Serious: No
  Sender: FDA-Public Use
  Company Number: US-ASTRAZENECA-2008UW03901

PATIENT
  Age: 69 Year
  Sex: Female
  Weight: 75.7 kg

DRUGS (4)
  1. ARIMIDEX [Suspect]
     Indication: BREAST CANCER
     Route: 048
     Dates: start: 20080101
  2. LOTREL [Concomitant]
  3. RANITIDINE [Concomitant]
  4. VITAMIN [Concomitant]

REACTIONS (2)
  - NIGHT SWEATS [None]
  - WEIGHT DECREASED [None]
